FAERS Safety Report 4397034-2 (Version None)
Quarter: 2004Q3

REPORT INFORMATION
  Report Type: 
  Country: None (occurrence: None)
  Receive Date: 20040714
  Receipt Date: 20040706
  Transmission Date: 20050211
  Serious: Yes (Other)
  Sender: FDA-Public Use
  Company Number: PHBS2004TW09150

PATIENT
  Age: 21 Year
  Sex: Male

DRUGS (4)
  1. CYCLOSPORINE [Suspect]
     Indication: APLASTIC ANAEMIA
     Dosage: 10 MG/KG/D
  2. THYMOGLOBULIN [Suspect]
     Dosage: 5 MG/KG/D
  3. PREDNISONE [Concomitant]
     Dosage: 1 MG/KG/D
  4. BLOOD AND RELATED PRODUCTS [Concomitant]

REACTIONS (5)
  - ALANINE AMINOTRANSFERASE INCREASED [None]
  - HEPATIC FUNCTION ABNORMAL [None]
  - HEPATITIS B [None]
  - HYPERBILIRUBINAEMIA [None]
  - LYMPHOPENIA [None]
